FAERS Safety Report 11148243 (Version 1)
Quarter: 2015Q2

REPORT INFORMATION
  Report Type: Spontaneous
  Country: PT (occurrence: None)
  Receive Date: 20150527
  Receipt Date: 20150527
  Transmission Date: 20150821
  Serious: No
  Sender: FDA-Public Use
  Company Number: PT-LHC-2015060

PATIENT
  Age: 66 Year
  Sex: Female

DRUGS (1)
  1. OXIGENIO MEDICINAL LINDE (OXYGEN) (GAS FOR INHALATION) (VERUM) [Suspect]
     Active Substance: OXYGEN
     Dosage: INHALATION
     Route: 055

REACTIONS (1)
  - Thermal burn [None]

NARRATIVE: CASE EVENT DATE: 20150513
